FAERS Safety Report 8291377-8 (Version None)
Quarter: 2012Q2

REPORT INFORMATION
  Report Type: 
  Country: None (occurrence: None)
  Receive Date: 20120417
  Receipt Date: 20120409
  Transmission Date: 20120825
  Serious: Yes (Hospitalization)
  Sender: FDA-Public Use
  Company Number: US-GLAXOSMITHKLINE-A0973676A

PATIENT
  Age: 21 Year
  Sex: Female

DRUGS (3)
  1. LAMOTRGINE [Suspect]
     Indication: DEPRESSION
     Dates: start: 20120301
  2. ESCITALOPRAM [Concomitant]
  3. BUPROPION HCL [Concomitant]
     Indication: DEPRESSION
     Dates: start: 20120301

REACTIONS (12)
  - BLOOD TRIGLYCERIDES INCREASED [None]
  - HYPERSENSITIVITY [None]
  - HISTIOCYTOSIS HAEMATOPHAGIC [None]
  - PYREXIA [None]
  - RASH [None]
  - HYPOTENSION [None]
  - HYPOPHAGIA [None]
  - NAUSEA [None]
  - VOMITING [None]
  - LYMPHADENOPATHY [None]
  - MENTAL STATUS CHANGES [None]
  - DEPRESSED LEVEL OF CONSCIOUSNESS [None]
